FAERS Safety Report 10244964 (Version 3)
Quarter: 2014Q3

REPORT INFORMATION
  Report Type: Spontaneous
  Country: US (occurrence: US)
  Receive Date: 20140618
  Receipt Date: 20140912
  Transmission Date: 20150326
  Serious: No
  Sender: FDA-Public Use
  Company Number: US-GALDERMA-US14000754

PATIENT
  Age: 45 Year
  Sex: Female
  Weight: 104.54 kg

DRUGS (6)
  1. AVENE MOISTURIZER [Concomitant]
     Active Substance: HERBS\ROOTS
     Indication: DRY SKIN PROPHYLAXIS
     Route: 061
     Dates: start: 200806
  2. CHANEL BASE [Concomitant]
     Dates: start: 201009
  3. CHANEL POWDER BLUSH [Concomitant]
  4. MIRVASO [Suspect]
     Active Substance: BRIMONIDINE TARTRATE
     Indication: ROSACEA
     Dosage: 0.33%
     Route: 061
     Dates: start: 20140206, end: 20140219
  5. AVENE ANTI ROUGEURS FACE WASH [Concomitant]
     Indication: THERAPEUTIC SKIN CARE TOPICAL
     Route: 061
     Dates: start: 200906
  6. AVENE NIGHTTIME MOISTURIZER [Concomitant]
     Indication: DRY SKIN PROPHYLAXIS
     Route: 061
     Dates: start: 200806

REACTIONS (3)
  - Rash pustular [Recovered/Resolved]
  - Condition aggravated [Recovered/Resolved]
  - Blister [Recovered/Resolved]

NARRATIVE: CASE EVENT DATE: 20140207
